FAERS Safety Report 22060068 (Version 1)
Quarter: 2023Q1

REPORT INFORMATION
  Report Type: Report from Study
  Country: IN (occurrence: IN)
  Receive Date: 20230303
  Receipt Date: 20230303
  Transmission Date: 20230417
  Serious: Yes (Hospitalization, Other)
  Sender: FDA-Public Use
  Company Number: IN-002147023-NVSC2022IN299575

PATIENT
  Sex: Male

DRUGS (9)
  1. SECUKINUMAB [Suspect]
     Active Substance: SECUKINUMAB
     Indication: Psoriatic arthropathy
     Dosage: 150 MG, QMO
     Route: 058
  2. SECUKINUMAB [Suspect]
     Active Substance: SECUKINUMAB
     Indication: Arthritis
     Dosage: UNK
     Route: 065
     Dates: start: 20221130
  3. SECUKINUMAB [Suspect]
     Active Substance: SECUKINUMAB
     Dosage: UNK
     Route: 065
     Dates: start: 20221223
  4. SECUKINUMAB [Suspect]
     Active Substance: SECUKINUMAB
     Dosage: 150 MG, QMO
     Route: 058
  5. ADALIMUMAB [Concomitant]
     Active Substance: ADALIMUMAB
     Indication: Product used for unknown indication
     Dosage: 40 MG (40 MG X 6)
     Route: 065
  6. METHOTREXATE SODIUM [Concomitant]
     Active Substance: METHOTREXATE SODIUM
     Indication: Product used for unknown indication
     Dosage: 15 MG, QW (AFTER FOOD)
     Route: 065
  7. SYSFOL [Concomitant]
     Indication: Product used for unknown indication
     Dosage: 5 MG (TWO DAYS A WEEK WEDNESDAY AND THURSDAY)
     Route: 065
  8. ETOVA [Concomitant]
     Indication: Product used for unknown indication
     Dosage: 400 MG, QD (AFTER FOOD)
     Route: 065
  9. SOMPRAZ [Concomitant]
     Indication: Product used for unknown indication
     Dosage: 40 MG, QD (BEFORE BREAKFAST)
     Route: 065

REACTIONS (8)
  - COVID-19 [Unknown]
  - Type 2 diabetes mellitus [Unknown]
  - Malaise [Unknown]
  - Back pain [Unknown]
  - Musculoskeletal pain [Unknown]
  - Arthritis [Unknown]
  - Joint range of motion decreased [Unknown]
  - Psoriasis [Unknown]

NARRATIVE: CASE EVENT DATE: 20200101
